FAERS Safety Report 8223679-5 (Version None)
Quarter: 2012Q1

REPORT INFORMATION
  Report Type: 
  Country: None (occurrence: None)
  Receive Date: 20120321
  Receipt Date: 20120313
  Transmission Date: 20120608
  Serious: Yes (Hospitalization)
  Sender: FDA-Public Use
  Company Number: DE-UCBSA-053420

PATIENT
  Sex: Female
  Weight: 63 kg

DRUGS (12)
  1. PREDNISONE TAB [Concomitant]
     Dates: start: 20111108
  2. TRAMADOL HCL [Concomitant]
     Indication: INTERVERTEBRAL DISC DEGENERATION
     Dates: start: 20080801
  3. METOPROLOL SUCCINATE [Concomitant]
     Indication: HYPERTENSION
     Dates: start: 20110801
  4. PREDNISONE TAB [Concomitant]
     Indication: RHEUMATOID ARTHRITIS
     Dates: start: 20110701, end: 20111107
  5. PREDNISONE TAB [Concomitant]
     Dates: start: 20111101
  6. D3 VICOTRAT [Concomitant]
     Indication: VITAMIN D DEFICIENCY
     Dates: start: 20110401
  7. BUPRENORPHINE [Concomitant]
     Indication: INTERVERTEBRAL DISC DEGENERATION
     Dosage: 5?G/H
     Dates: start: 20110801
  8. OMEPRAZOLE [Concomitant]
     Indication: PROPHYLAXIS AGAINST GASTROINTESTINAL ULCER
     Dates: start: 20081201
  9. CERTOLIZUMAB PEGOL [Suspect]
     Indication: RHEUMATOID ARTHRITIS
     Dosage: NO OF DOSES RECEIVED 5
     Route: 058
     Dates: start: 20110919, end: 20111124
  10. NIFEDIPINE [Concomitant]
     Indication: HYPERTENSION
     Dates: start: 20080101
  11. IRBESARTAN [Concomitant]
     Indication: HYPERTENSION
     Dates: start: 20110801
  12. ALLOPURINOL [Concomitant]
     Indication: HYPERURICAEMIA
     Dates: start: 20061001

REACTIONS (1)
  - GALLBLADDER EMPYEMA [None]
